FAERS Safety Report 7726231-0 (Version None)
Quarter: 2011Q3

REPORT INFORMATION
  Report Type: 
  Country: None (occurrence: None)
  Receive Date: 20110831
  Receipt Date: 20110816
  Transmission Date: 20111222
  Serious: Yes (Hospitalization)
  Sender: FDA-Public Use
  Company Number: FK201101640

PATIENT
  Age: 54 Year
  Sex: Male
  Weight: 102 kg

DRUGS (27)
  1. CISPLATIN [Suspect]
     Indication: COLON CANCER
     Dosage: 30 MG/M2, DAYS 1 AND 8 OF 21D CYCLE, INTRAVENOUS
     Route: 042
     Dates: start: 20110712, end: 20110712
  2. DEXAMETHASONE [Concomitant]
  3. NORMAL SALINE (SODIUM CHLORIDE) (SODIUM CHLORIDE) [Concomitant]
  4. OLMESARTAN MEDOXOMIL [Concomitant]
  5. ERLOTINIB HYDROCHLORIDE [Suspect]
     Indication: COLON CANCER
     Dosage: 100 MG, DAILY X 2 DAYS, ORAL
     Route: 048
     Dates: start: 20110712, end: 20110713
  6. APREPITANT (APREPITANT) (APREPITANT) [Concomitant]
  7. GLIPIZIDE [Concomitant]
  8. PRAVASTATIN [Concomitant]
  9. VITAMIN B COMPLEX WITH C (BEMINAL WITH C) (BEMINAL WITH C) [Concomitant]
  10. PROBIOTIC (INFLORAN) (INFLORAN) [Concomitant]
  11. LEVOGLUTAMINE (LEVOGLUTAMINE) (LEVOGLUTAMINE) [Concomitant]
  12. MULTIVITAMINS (MULTIVITAMINS) (MULTIVITAMINS) [Concomitant]
  13. METFORMIN HCL [Concomitant]
  14. PIOGLITAZONE (PIOGLITAZONE) (PIOGLITAZONE) [Concomitant]
  15. IRON (IRON) (IRON) [Concomitant]
  16. ALPHA LIPOIC ACID (THIOCTIC ACID) (THIOCTIC ACID) [Concomitant]
  17. TEMSIROLIMUS [Suspect]
     Indication: COLON CANCER
     Dosage: 15 MG, DAYS : 1 AND 8 OF 21DAY CYCLE, INTRAVENOUS
     Route: 042
     Dates: start: 20110712, end: 20110712
  18. PALONOSETRON (PALONSETRON) (PALONSETRON) [Concomitant]
  19. OXYCODONE HCL [Concomitant]
  20. OMEPRAZOLE [Concomitant]
  21. BIOTIN (BIOTIN) (BIOTIN) [Concomitant]
  22. CYANOCOBALAMIN (CYANOCOBALAMIN) (CYANOCOBALAMIN) [Concomitant]
  23. VITAMIN D3 (COLECALCIFEROL) (COLECALCIFEROL) [Concomitant]
  24. LOPERAMIDE (LOPERAMIDE) (LOPERIMIDE) [Concomitant]
  25. IBUPROFEN [Concomitant]
  26. ACETAMINOPHEN (PARACETAMOL) (PARACETAMOL) [Concomitant]
  27. DIPHENOXYLATE HYDROCHLORIDE (DIPHENOXYLATE HYDROCHLORIDE) (DIPHENOXYLA [Concomitant]

REACTIONS (8)
  - INCREASED UPPER AIRWAY SECRETION [None]
  - DYSPNOEA [None]
  - RHONCHI [None]
  - HYPOXIA [None]
  - COUGH [None]
  - PLEURAL EFFUSION [None]
  - HYPERHIDROSIS [None]
  - RALES [None]
